FAERS Safety Report 8834440 (Version 2)
Quarter: 2012Q4

REPORT INFORMATION
  Report Type: 
  Country: US (occurrence: US)
  Receive Date: 20121010
  Receipt Date: 20121102
  Transmission Date: 20130627
  Serious: Yes (Other)
  Sender: FDA-Public Use
  Company Number: US-ASTRAZENECA-2012SE75920

PATIENT
  Age: 81 Year
  Sex: Female

DRUGS (1)
  1. SYMBICORT PMDI [Suspect]
     Dosage: UNKNOWN DOSE, UNKNOWN FREQUENCY
     Route: 055

REACTIONS (3)
  - Nerve injury [Unknown]
  - Hemiplegia [Unknown]
  - Asthma [Unknown]
